FAERS Safety Report 18728957 (Version 1)
Quarter: 2021Q1

REPORT INFORMATION
  Report Type: Report from Study
  Country: BR (occurrence: BR)
  Receive Date: 20210112
  Receipt Date: 20210112
  Transmission Date: 20210419
  Serious: Yes (Other)
  Sender: FDA-Public Use
  Company Number: NVSC2021BR004130

PATIENT

DRUGS (2)
  1. DIOVAN [Suspect]
     Active Substance: VALSARTAN
     Indication: PRODUCT USED FOR UNKNOWN INDICATION
     Dosage: 1 DF, AT NIGHT (DIOVAN 160)
     Route: 065
  2. DIOVAN [Suspect]
     Active Substance: VALSARTAN
     Dosage: 1 DF, AT MONING (DIOVAN 80)
     Route: 065

REACTIONS (7)
  - Deafness [Unknown]
  - Nervousness [Unknown]
  - Fatigue [Unknown]
  - Cardiac disorder [Unknown]
  - Malaise [Unknown]
  - Thrombosis [Unknown]
  - Varicose vein [Unknown]
